FAERS Safety Report 22649534 (Version 1)
Quarter: 2023Q2

REPORT INFORMATION
  Report Type: Report from Study
  Country: CO (occurrence: CO)
  Receive Date: 20230628
  Receipt Date: 20230628
  Transmission Date: 20230722
  Serious: Yes (Hospitalization)
  Sender: FDA-Public Use
  Company Number: CO-JNJFOC-20230660951

PATIENT
  Age: 37 Year
  Sex: Female
  Weight: 60 kg

DRUGS (1)
  1. SIMPONI [Suspect]
     Active Substance: GOLIMUMAB
     Indication: Rheumatoid arthritis
     Dosage: LAST DRUG APPLICATION WAS ON 15-JUN-2023
     Route: 058
     Dates: start: 20230315

REACTIONS (2)
  - Myomectomy [Unknown]
  - Salpingectomy [Unknown]

NARRATIVE: CASE EVENT DATE: 20230601
